FAERS Safety Report 20684155 (Version 1)
Quarter: 2022Q2

REPORT INFORMATION
  Report Type: Spontaneous
  Country: CA (occurrence: CA)
  Receive Date: 20220407
  Receipt Date: 20220407
  Transmission Date: 20220721
  Serious: Yes (Other)
  Sender: FDA-Public Use
  Company Number: CA-ALLERGAN-2211159US

PATIENT
  Sex: Male

DRUGS (5)
  1. COMBIGAN [Suspect]
     Active Substance: BRIMONIDINE TARTRATE\TIMOLOL MALEATE
     Indication: Product used for unknown indication
     Route: 047
  2. DUREZOL [Concomitant]
     Active Substance: DIFLUPREDNATE
  3. NEPTAZANE [Concomitant]
     Active Substance: METHAZOLAMIDE
  4. IZBA [Concomitant]
     Active Substance: TRAVOPROST
  5. METHAZOLAMIDE [Concomitant]
     Active Substance: METHAZOLAMIDE

REACTIONS (3)
  - Malignant glaucoma [Recovering/Resolving]
  - Intraocular pressure increased [Recovering/Resolving]
  - Visual acuity reduced [Unknown]
